FAERS Safety Report 5259426-9 (Version None)
Quarter: 2007Q1

REPORT INFORMATION
  Report Type: 
  Country: None (occurrence: None)
  Receive Date: 20070308
  Receipt Date: 20070226
  Transmission Date: 20070707
  Serious: Yes (Hospitalization)
  Sender: FDA-Public Use
  Company Number: GB-ABBOTT-07P-167-0360432-00

PATIENT
  Sex: Female
  Weight: 73 kg

DRUGS (9)
  1. HUMIRA [Suspect]
     Indication: RHEUMATOID ARTHRITIS
     Route: 058
     Dates: start: 20040515, end: 20051221
  2. PREDNISOLONE [Concomitant]
     Indication: DRUG USE FOR UNKNOWN INDICATION
  3. AZITHROMYCIN [Concomitant]
     Indication: DRUG USE FOR UNKNOWN INDICATION
  4. BENDROFLUMETHIAZIDE [Concomitant]
     Indication: DRUG USE FOR UNKNOWN INDICATION
  5. FLIXOTIDE [Concomitant]
     Indication: DRUG USE FOR UNKNOWN INDICATION
  6. ACETAMINOPHEN [Concomitant]
     Indication: DRUG USE FOR UNKNOWN INDICATION
  7. FELODIPINE [Concomitant]
     Indication: DRUG USE FOR UNKNOWN INDICATION
  8. SALBUTAMOL [Concomitant]
     Indication: DRUG USE FOR UNKNOWN INDICATION
  9. LEVOTHYROXINE SODIUM [Concomitant]
     Indication: DRUG USE FOR UNKNOWN INDICATION

REACTIONS (2)
  - PLEURISY [None]
  - PNEUMONIA [None]
